FAERS Safety Report 5729935-4 (Version None)
Quarter: 2008Q2

REPORT INFORMATION
  Report Type: 
  Country: None (occurrence: None)
  Receive Date: 20080507
  Receipt Date: 20080424
  Transmission Date: 20081010
  Serious: Yes (Other)
  Sender: FDA-Public Use
  Company Number: DE-RANBAXY-2008RR-14891

PATIENT

DRUGS (3)
  1. CETIRIZINE HCL [Suspect]
     Dosage: UNK MG, UNK
  2. ALLERGOSPASMIN [Concomitant]
     Dosage: UNK
  3. EUTHYROX 50 [Concomitant]
     Indication: THYROID DISORDER

REACTIONS (2)
  - SENSATION OF PRESSURE [None]
  - SWELLING [None]
